FAERS Safety Report 5517427-7 (Version None)
Quarter: 2007Q4

REPORT INFORMATION
  Report Type: 
  Country: None (occurrence: None)
  Receive Date: 20071108
  Receipt Date: 20070724
  Transmission Date: 20080405
  Serious: Yes (Hospitalization)
  Sender: FDA-Public Use
  Company Number: 2007S1000291

PATIENT
  Age: 60 Year
  Sex: Female

DRUGS (2)
  1. CUBICIN [Suspect]
     Indication: OSTEOMYELITIS
     Dosage: Q24H;IV
     Route: 042
  2. TOBRAMYCIN [Concomitant]

REACTIONS (2)
  - CHEST PAIN [None]
  - HYPERSENSITIVITY [None]
